FAERS Safety Report 14606801 (Version 3)
Quarter: 2023Q1

REPORT INFORMATION
  Report Type: Spontaneous
  Country: CZ (occurrence: CZ)
  Receive Date: 20180307
  Receipt Date: 20230203
  Transmission Date: 20230417
  Serious: Yes (Other)
  Sender: FDA-Public Use
  Company Number: CZ-ACCORD-064169

PATIENT
  Age: 56 Year
  Sex: Female

DRUGS (9)
  1. ETOPOSIDE [Suspect]
     Active Substance: ETOPOSIDE
     Indication: Angioimmunoblastic T-cell lymphoma stage III
  2. CISPLATIN [Concomitant]
     Active Substance: CISPLATIN
     Indication: Angioimmunoblastic T-cell lymphoma stage III
  3. CARBOPLATIN [Concomitant]
     Active Substance: CARBOPLATIN
     Indication: Angioimmunoblastic T-cell lymphoma stage III
  4. CYTARABINE [Concomitant]
     Active Substance: CYTARABINE
     Indication: Angioimmunoblastic T-cell lymphoma stage III
  5. IFOSFAMIDE [Concomitant]
     Active Substance: IFOSFAMIDE
     Indication: Angioimmunoblastic T-cell lymphoma stage III
  6. DEXAMETHASONE [Concomitant]
     Active Substance: DEXAMETHASONE
     Indication: Angioimmunoblastic T-cell lymphoma stage III
     Dosage: 4 CYCLES OF R-GDP REGIMEN
     Route: 042
  7. CARMUSTINE [Concomitant]
     Active Substance: CARMUSTINE
     Indication: Angioimmunoblastic T-cell lymphoma stage III
  8. MELPHALAN [Concomitant]
     Active Substance: MELPHALAN
     Indication: Angioimmunoblastic T-cell lymphoma stage III
  9. RITUXIMAB [Concomitant]
     Active Substance: RITUXIMAB
     Indication: Angioimmunoblastic T-cell lymphoma stage III

REACTIONS (1)
  - Respiratory tract infection [Unknown]
